FAERS Safety Report 8459854-4 (Version None)
Quarter: 2012Q2

REPORT INFORMATION
  Report Type: 
  Country: None (occurrence: None)
  Receive Date: 20120622
  Receipt Date: 20120618
  Transmission Date: 20120825
  Serious: Yes (Hospitalization, Other)
  Sender: FDA-Public Use
  Company Number: PHHY2012BR052551

PATIENT
  Sex: Female

DRUGS (6)
  1. SIMVASTATIN [Concomitant]
     Indication: BLOOD CHOLESTEROL ABNORMAL
     Dosage: 1 DF, UNK
  2. ASPIRIN [Concomitant]
     Indication: BLOOD DISORDER
     Dosage: 1 DF, UNK
  3. DIOVAN [Suspect]
     Indication: PERICARDIAL EFFUSION
     Dosage: 1 DF, DAY (80 MG)
     Route: 048
  4. MIRTAZAPINE [Concomitant]
     Indication: DEMENTIA
     Dosage: 1 DF, A NIGHT
  5. AMIODARONE HYDROCHLORIDE [Concomitant]
     Indication: CARDIAC DISORDER
     Dosage: 1 DF, 200 MG
  6. CLOZAPINE [Concomitant]
     Indication: DEMENTIA
     Dosage: 2 DF, UNK

REACTIONS (2)
  - CEREBROVASCULAR ACCIDENT [None]
  - DEMENTIA ALZHEIMER'S TYPE [None]
